FAERS Safety Report 9548433 (Version 1)
Quarter: 2013Q2

REPORT INFORMATION
  Report Type: Spontaneous
  Country: US (occurrence: None)
  Receive Date: 20130619
  Receipt Date: 20130619
  Transmission Date: 20140414
  Serious: Yes (Hospitalization)
  Sender: FDA-Public Use
  Company Number: 1452857

PATIENT
  Sex: 0

DRUGS (1)
  1. HEPARIN SODIUM [Suspect]
     Indication: PRODUCT USED FOR UNKNOWN INDICATION
     Route: 041
     Dates: start: 20121003, end: 20121003

REACTIONS (4)
  - Incorrect drug administration rate [None]
  - Device computer issue [None]
  - Prothrombin time abnormal [None]
  - International normalised ratio abnormal [None]
